FAERS Safety Report 6345482-3 (Version None)
Quarter: 2009Q3

REPORT INFORMATION
  Report Type: 
  Country: None (occurrence: None)
  Receive Date: 20090909
  Receipt Date: 20090828
  Transmission Date: 20100115
  Serious: Yes (Other)
  Sender: FDA-Public Use
  Company Number: US-SOLVAY-00209004841

PATIENT
  Age: 28024 Day
  Sex: Male
  Weight: 79.545 kg

DRUGS (6)
  1. INSULIN [Concomitant]
     Indication: DIABETES MELLITUS
     Dosage: DAILY DOSE:  UNKNOWN
     Route: 058
  2. CREON [Suspect]
     Indication: PANCREATIC CARCINOMA
     Dosage: DAILY DOSE: 1 DOSAGE FORM; AS USED: ONE CAPSULE; FREQUENCY: ONCE
     Route: 048
     Dates: start: 20090825, end: 20090825
  3. DIGOXIN [Concomitant]
     Indication: DRUG USE FOR UNKNOWN INDICATION
     Dosage: DAILY DOSE:  UNKNOWN; AS USED: 0.25 MG.
     Route: 048
  4. SIMVASTATIN [Concomitant]
     Indication: DRUG USE FOR UNKNOWN INDICATION
     Dosage: DAILY DOSE:  UNKNOWN; AS USED: 40 MG.
     Route: 048
  5. ONDANSETRON [Concomitant]
     Indication: NAUSEA
     Dosage: DAILY DOSE:  UNKNOWN; AS USED: 8 MG; FREQUENCY: AS NEEDED.
     Route: 048
  6. LORSARTAN [Concomitant]
     Indication: DRUG USE FOR UNKNOWN INDICATION
     Dosage: DAILY DOSE:  UNKNOWN; AS USED: 50 MG.
     Route: 048

REACTIONS (2)
  - POST PROCEDURAL DISCHARGE [None]
  - VOMITING [None]
